FAERS Safety Report 14750840 (Version 1)
Quarter: 2018Q2

REPORT INFORMATION
  Report Type: Spontaneous
  Country: US (occurrence: US)
  Receive Date: 20180412
  Receipt Date: 20180412
  Transmission Date: 20180711
  Serious: Yes (Death, Other)
  Sender: FDA-Public Use
  Company Number: US-ROCHE-2104495

PATIENT
  Age: 80 Year
  Sex: Female
  Weight: 90.8 kg

DRUGS (3)
  1. IMBRUVICA [Suspect]
     Active Substance: IBRUTINIB
     Indication: WALDENSTROM^S MACROGLOBULINAEMIA
     Dosage: QD, ONGOING
     Route: 048
     Dates: start: 201710
  2. RITUXAN [Suspect]
     Active Substance: RITUXIMAB
     Indication: PRODUCT USED FOR UNKNOWN INDICATION
     Route: 042
  3. IMBRUVICA [Suspect]
     Active Substance: IBRUTINIB
     Route: 048
     Dates: end: 20180115

REACTIONS (5)
  - Complication associated with device [Not Recovered/Not Resolved]
  - Arrhythmia [Unknown]
  - Heart rate increased [Not Recovered/Not Resolved]
  - Arthralgia [Recovering/Resolving]
  - Acute hepatic failure [Fatal]

NARRATIVE: CASE EVENT DATE: 20180221
